FAERS Safety Report 6049110-6 (Version None)
Quarter: 2009Q1

REPORT INFORMATION
  Report Type: 
  Country: None (occurrence: None)
  Receive Date: 20090123
  Receipt Date: 20090109
  Transmission Date: 20090719
  Serious: Yes (Congenital Anomaly)
  Sender: FDA-Public Use
  Company Number: FR-AVENTIS-200910043FR

PATIENT
  Age: 27 Year
  Sex: Female

DRUGS (1)
  1. CLOMID [Suspect]
     Route: 064
     Dates: start: 20081001, end: 20081001

REACTIONS (1)
  - CONGENITAL ANOMALY [None]
